FAERS Safety Report 16038530 (Version 1)
Quarter: 2019Q1

REPORT INFORMATION
  Report Type: Spontaneous
  Country: US (occurrence: US)
  Receive Date: 20190305
  Receipt Date: 20190305
  Transmission Date: 20190418
  Serious: Yes (Death, Other)
  Sender: FDA-Public Use
  Company Number: US-009507513-1903USA001832

PATIENT
  Age: 70 Year
  Sex: Female

DRUGS (3)
  1. AMLODIPINE [Suspect]
     Active Substance: AMLODIPINE BESYLATE
  2. DILTIAZEM. [Suspect]
     Active Substance: DILTIAZEM
  3. REMERON [Suspect]
     Active Substance: MIRTAZAPINE
     Dosage: ROUTE: INGESTED
     Route: 048

REACTIONS (1)
  - Suspected suicide attempt [Fatal]
